FAERS Safety Report 14614469 (Version 1)
Quarter: 2018Q1

REPORT INFORMATION
  Report Type: Spontaneous
  Country: US (occurrence: US)
  Receive Date: 20180308
  Receipt Date: 20180308
  Transmission Date: 20180509
  Serious: No
  Sender: FDA-Public Use
  Company Number: US-PERRIGO-17US001189

PATIENT
  Age: 72 Year
  Sex: Female

DRUGS (2)
  1. LISINOPRIL. [Suspect]
     Active Substance: LISINOPRIL
     Indication: HYPERTENSION
     Dosage: UNKNOWN, BID
     Route: 048
     Dates: start: 2010, end: 2016
  2. NICOTINE POLACRILEX [Suspect]
     Active Substance: NICOTINE
     Indication: SMOKING CESSATION THERAPY
     Dosage: 1/2 LOZENGE, UKNOWN
     Route: 002
     Dates: start: 2015

REACTIONS (3)
  - Nicotine dependence [Unknown]
  - Wrong technique in product usage process [Unknown]
  - Alopecia [Unknown]

NARRATIVE: CASE EVENT DATE: 2015
